FAERS Safety Report 9375582 (Version 3)
Quarter: 2014Q3

REPORT INFORMATION
  Report Type: Spontaneous
  Country: US (occurrence: US)
  Receive Date: 20130628
  Receipt Date: 20140930
  Transmission Date: 20150326
  Serious: Yes (Hospitalization, Other)
  Sender: FDA-Public Use
  Company Number: US-009507513-1306USA013008

PATIENT
  Sex: Female
  Weight: 77.98 kg

DRUGS (1)
  1. NUVARING [Suspect]
     Active Substance: ETHINYL ESTRADIOL\ETONOGESTREL
     Indication: CONTRACEPTION
     Dosage: UNK
     Route: 067
     Dates: start: 2003

REACTIONS (13)
  - Hypothyroidism [Unknown]
  - Ischaemic cerebral infarction [Unknown]
  - Aortic intramural haematoma [Unknown]
  - Hypercholesterolaemia [Unknown]
  - Gastrostomy [Unknown]
  - Ovarian cyst [Unknown]
  - Breast cyst [Unknown]
  - Sciatica [Unknown]
  - Constipation [Unknown]
  - Fall [Unknown]
  - Spinal pain [Not Recovered/Not Resolved]
  - Peripheral swelling [Unknown]
  - Carotid artery dissection [Unknown]

NARRATIVE: CASE EVENT DATE: 200711
